FAERS Safety Report 23950324 (Version 1)
Quarter: 2024Q2

REPORT INFORMATION
  Report Type: Spontaneous
  Country: CN (occurrence: CN)
  Receive Date: 20240607
  Receipt Date: 20240607
  Transmission Date: 20240716
  Serious: Yes (Other)
  Sender: FDA-Public Use
  Company Number: CN-SA-SAC20240605000842

PATIENT
  Age: 80 Year
  Sex: Female

DRUGS (7)
  1. CLOPIDOGREL BISULFATE [Suspect]
     Active Substance: CLOPIDOGREL BISULFATE
     Indication: Antiplatelet therapy
     Dosage: 75 MG , QD
     Route: 048
     Dates: start: 20240430, end: 20240513
  2. CLOPIDOGREL BISULFATE [Suspect]
     Active Substance: CLOPIDOGREL BISULFATE
     Dosage: 75 MG, TOTAL
     Route: 048
     Dates: start: 20240516, end: 20240521
  3. ENOXAPARIN SODIUM [Suspect]
     Active Substance: ENOXAPARIN SODIUM
     Indication: Thrombosis prophylaxis
     Dosage: 0.4 ML, TOTAL
     Route: 058
     Dates: start: 20240330, end: 20240513
  4. ENOXAPARIN SODIUM [Suspect]
     Active Substance: ENOXAPARIN SODIUM
     Dosage: 0.4 ML, TOTAL
     Route: 058
     Dates: start: 20240515, end: 20240521
  5. RIVAROXABAN [Suspect]
     Active Substance: RIVAROXABAN
     Indication: Coagulopathy
     Dosage: 10 MG, TOTAL
     Route: 048
     Dates: start: 20240522, end: 20240526
  6. CHOLIC ACID [Concomitant]
     Active Substance: CHOLIC ACID
     Dosage: UNK
  7. ATORVASTATIN CALCIUM [Concomitant]
     Active Substance: ATORVASTATIN CALCIUM
     Indication: Hyperlipidaemia
     Dosage: 20 MG, TOTAL
     Route: 048
     Dates: start: 20240430, end: 20240530

REACTIONS (3)
  - Activated partial thromboplastin time prolonged [Recovering/Resolving]
  - Coagulation time prolonged [Recovering/Resolving]
  - Ecchymosis [Recovering/Resolving]

NARRATIVE: CASE EVENT DATE: 20240526
